FAERS Safety Report 17215789 (Version 4)
Quarter: 2021Q4

REPORT INFORMATION
  Report Type: Spontaneous
  Country: CA (occurrence: CA)
  Receive Date: 20191230
  Receipt Date: 20211206
  Transmission Date: 20220303
  Serious: Yes (Hospitalization, Other)
  Sender: FDA-Public Use
  Company Number: CA-LUNDBECK-DKLU3009279

PATIENT
  Sex: Male

DRUGS (14)
  1. CITALOPRAM HYDROBROMIDE [Suspect]
     Active Substance: CITALOPRAM HYDROBROMIDE
     Indication: Product used for unknown indication
     Dosage: 20 MG, QD
     Route: 065
  2. ATIVAN [Suspect]
     Active Substance: LORAZEPAM
     Indication: Product used for unknown indication
     Dosage: UNK
     Route: 065
  3. MEPOLIZUMAB [Suspect]
     Active Substance: MEPOLIZUMAB
     Indication: Asthma
     Dosage: 100 MG, Q MONTH
     Route: 042
     Dates: start: 20180418
  4. PREDNISONE [Suspect]
     Active Substance: PREDNISONE
     Indication: Asthma
     Dosage: 40 MG, QD
     Route: 065
  5. RABEPRAZOLE [Suspect]
     Active Substance: RABEPRAZOLE
     Indication: Product used for unknown indication
     Dosage: UNK
     Route: 065
  6. SPORANOX [Suspect]
     Active Substance: ITRACONAZOLE
     Indication: Product used for unknown indication
     Dosage: 100 MG, TID
     Route: 065
  7. SPORANOX [Suspect]
     Active Substance: ITRACONAZOLE
     Dosage: 200 MG, QD
  8. SPORANOX [Suspect]
     Active Substance: ITRACONAZOLE
     Dosage: 100 MG, BID
     Route: 065
  9. SYMBICORT [Suspect]
     Active Substance: BUDESONIDE\FORMOTEROL FUMARATE DIHYDRATE
     Indication: Product used for unknown indication
     Dosage: 2 DF, TID
     Route: 055
  10. SYMBICORT [Suspect]
     Active Substance: BUDESONIDE\FORMOTEROL FUMARATE DIHYDRATE
     Dosage: 2 DF, BID
     Route: 055
  11. ALBUTEROL [Suspect]
     Active Substance: ALBUTEROL
     Indication: Asthma
     Route: 065
  12. NUCALA [Suspect]
     Active Substance: MEPOLIZUMAB
     Indication: Asthma
     Dosage: 100 MG
  13. CETIRIZINE [Suspect]
     Active Substance: CETIRIZINE HYDROCHLORIDE
     Indication: Product used for unknown indication
  14. AZITHROMYCIN ANHYDROUS [Concomitant]
     Active Substance: AZITHROMYCIN ANHYDROUS
     Indication: Product used for unknown indication
     Dosage: 500 MG, QD

REACTIONS (33)
  - Full blood count abnormal [Unknown]
  - Bronchiectasis [Unknown]
  - Chest discomfort [Unknown]
  - Condition aggravated [Unknown]
  - Obstructive airways disorder [Unknown]
  - Respiratory disorder [Unknown]
  - Secretion discharge [Unknown]
  - Sinus congestion [Unknown]
  - Tendon disorder [Unknown]
  - Bronchial disorder [Unknown]
  - Bronchopulmonary aspergillosis allergic [Unknown]
  - Chest pain [Unknown]
  - Folliculitis [Unknown]
  - Forced expiratory volume [Unknown]
  - Upper respiratory fungal infection [Unknown]
  - Haemoptysis [Unknown]
  - Hyperventilation [Unknown]
  - Lung disorder [Unknown]
  - Mycobacterial infection [Unknown]
  - Parathyroid gland enlargement [Unknown]
  - Wheezing [Unknown]
  - Loss of personal independence in daily activities [Unknown]
  - Asthma [Unknown]
  - Dyspnoea [Unknown]
  - Sleep disorder due to a general medical condition [Unknown]
  - Sinusitis [Unknown]
  - Upper respiratory tract infection [Unknown]
  - Cough [Unknown]
  - Lymphadenopathy [Unknown]
  - Anxiety [Unknown]
  - Weight increased [Unknown]
  - Rash [Unknown]
  - Therapeutic product effect incomplete [Unknown]

NARRATIVE: CASE EVENT DATE: 20180201
